FAERS Safety Report 9613635 (Version 1)
Quarter: 2013Q4

REPORT INFORMATION
  Report Type: Spontaneous
  Country: US (occurrence: US)
  Receive Date: 20131010
  Receipt Date: 20131010
  Transmission Date: 20140711
  Serious: Yes (Other)
  Sender: FDA-Public Use
  Company Number: US-TEVA-437046USA

PATIENT
  Sex: Female
  Weight: 37.23 kg

DRUGS (2)
  1. AZILECT [Suspect]
     Indication: PARKINSON^S DISEASE
     Dates: start: 20130923
  2. THYROXINE [Concomitant]
     Indication: HYPOTHYROIDISM

REACTIONS (1)
  - Hip fracture [Unknown]
